FAERS Safety Report 11696501 (Version 1)
Quarter: 2015Q4

REPORT INFORMATION
  Report Type: Spontaneous
  Country: CH (occurrence: CH)
  Receive Date: 20151104
  Receipt Date: 20151104
  Transmission Date: 20160304
  Serious: Yes (Other)
  Sender: FDA-Public Use
  Company Number: CH-BAYER-2015-453851

PATIENT
  Sex: Female

DRUGS (3)
  1. AMLODIPINE [Concomitant]
     Active Substance: AMLODIPINE BESYLATE
     Indication: HYPERTENSION
     Dosage: 10 MG, UNK
  2. RAMIPRIL. [Concomitant]
     Active Substance: RAMIPRIL
  3. STIVARGA [Suspect]
     Active Substance: REGORAFENIB
     Indication: ADENOCARCINOMA
     Dosage: 160 MG, QD
     Route: 048
     Dates: start: 201309

REACTIONS (4)
  - Angioedema [Recovered/Resolved]
  - Hypertension [Not Recovered/Not Resolved]
  - Tongue spasm [Recovered/Resolved]
  - Skin toxicity [Recovered/Resolved]
